FAERS Safety Report 10460989 (Version 1)
Quarter: 2014Q2

REPORT INFORMATION
  Report Type: Spontaneous
  Country: US (occurrence: None)
  Receive Date: 20140502
  Receipt Date: 20140502
  Transmission Date: 20141212
  Serious: Yes (Hospitalization)
  Sender: FDA-Public Use
  Company Number: GTI002280

PATIENT
  Age: 45 Year
  Sex: Female

DRUGS (1)
  1. GAMUNEX-C [Suspect]
     Indication: CHRONIC INFLAMMATORY DEMYELINATING POLYRADICULONEUROPATHY
     Route: 042
     Dates: start: 2013

REACTIONS (7)
  - Infusion site extravasation [None]
  - Peripheral swelling [None]
  - Induration [None]
  - Rash papular [None]
  - Infection [None]
  - Drug eruption [None]
  - Unevaluable event [None]
